FAERS Safety Report 10275822 (Version 1)
Quarter: 2014Q3

REPORT INFORMATION
  Report Type: Spontaneous
  Country: US (occurrence: None)
  Receive Date: 20140701
  Receipt Date: 20140701
  Transmission Date: 20150326
  Serious: No
  Sender: FDA-Public Use
  Company Number: None

PATIENT
  Age: 49 Year
  Sex: Male
  Weight: 64.2 kg

DRUGS (1)
  1. DEXTROSE/HEPARIN [Suspect]
     Active Substance: DEXTROSE\HEPARIN
     Indication: THROMBECTOMY
     Dosage: 1000 UNITS UD IV
     Route: 042
     Dates: start: 20140220, end: 20140330

REACTIONS (4)
  - Ecchymosis [None]
  - Haematochezia [None]
  - Haemoglobin decreased [None]
  - Heparin-induced thrombocytopenia [None]

NARRATIVE: CASE EVENT DATE: 20140330
